FAERS Safety Report 5778518-9 (Version None)
Quarter: 2008Q2

REPORT INFORMATION
  Report Type: 
  Country: None (occurrence: None)
  Receive Date: 20080618
  Receipt Date: 20080618
  Transmission Date: 20081010
  Serious: No
  Sender: FDA-Public Use
  Company Number: None

PATIENT
  Age: 82 Year
  Sex: Male
  Weight: 101.15 kg

DRUGS (1)
  1. DULOXETINE [Suspect]
     Indication: PAIN
     Dosage: 30 MG EVERY DAY PO
     Route: 048
     Dates: start: 20080306, end: 20080319

REACTIONS (1)
  - DYSURIA [None]
